FAERS Safety Report 9639488 (Version 1)
Quarter: 2013Q4

REPORT INFORMATION
  Report Type: Spontaneous
  Country: TW (occurrence: TW)
  Receive Date: 20131023
  Receipt Date: 20131023
  Transmission Date: 20140711
  Serious: Yes (Hospitalization)
  Sender: FDA-Public Use
  Company Number: TW-AMGEN-TWNSP2013074275

PATIENT
  Age: 89 Year
  Sex: Female

DRUGS (5)
  1. ENBREL [Suspect]
     Indication: RHEUMATOID ARTHRITIS
     Dosage: 50 MG, BIW
     Route: 058
  2. SULFASALAZINE [Concomitant]
     Dosage: 500 MG, BID
     Route: 048
  3. PLAQUENIL                          /00072602/ [Concomitant]
     Dosage: 200 MG, BID
     Route: 048
  4. TRAMADOL [Concomitant]
     Dosage: 500 MG, BID
     Route: 048
  5. AMACE-BP [Concomitant]
     Dosage: #1, BID
     Route: 048

REACTIONS (1)
  - Squamous cell carcinoma [Not Recovered/Not Resolved]
